FAERS Safety Report 22098732 (Version 3)
Quarter: 2023Q4

REPORT INFORMATION
  Report Type: Spontaneous
  Country: JP (occurrence: JP)
  Receive Date: 20230315
  Receipt Date: 20231218
  Transmission Date: 20240110
  Serious: Yes (Hospitalization, Disabling, Other)
  Sender: FDA-Public Use
  Company Number: JP-MSD-M2023-02125

PATIENT
  Age: 73 Year
  Sex: Male

DRUGS (3)
  1. KEYTRUDA [Suspect]
     Active Substance: PEMBROLIZUMAB
     Indication: Bladder transitional cell carcinoma
     Dosage: 200 MILLIGRAM, Q3W
     Route: 041
     Dates: start: 20220507, end: 2022
  2. MAGNESIUM OXIDE [Concomitant]
     Active Substance: MAGNESIUM OXIDE
     Dosage: 500MG X 3T/3 TIMES
     Route: 048
     Dates: start: 20220507
  3. AMLODIPINE BESYLATE [Concomitant]
     Active Substance: AMLODIPINE BESYLATE
     Indication: Hypertension
     Dosage: 5 MILLIGRAM, QD, IN THE MORNING
     Route: 048

REACTIONS (5)
  - Chronic inflammatory demyelinating polyradiculoneuropathy [Recovered/Resolved with Sequelae]
  - Guillain-Barre syndrome [Recovered/Resolved with Sequelae]
  - Spinal osteoarthritis [Unknown]
  - Intervertebral disc protrusion [Unknown]
  - Radiculopathy [Unknown]

NARRATIVE: CASE EVENT DATE: 20220701
